FAERS Safety Report 9793035 (Version 1)
Quarter: 2014Q1

REPORT INFORMATION
  Report Type: Spontaneous
  Country: AU (occurrence: AU)
  Receive Date: 20140102
  Receipt Date: 20140102
  Transmission Date: 20141002
  Serious: Yes (Death)
  Sender: FDA-Public Use
  Company Number: AU-PFIZER INC-2013371655

PATIENT
  Age: 63 Year
  Sex: Male
  Weight: 83 kg

DRUGS (6)
  1. ANIDULAFUNGIN [Suspect]
     Dosage: 200 MG, UNK
     Route: 042
     Dates: start: 20130925
  2. PIPERACILLIN/TAZOBACTAM [Suspect]
     Dosage: 4.5 G, 3 TIMES
     Route: 041
     Dates: start: 20130914
  3. FILGRASTIM [Suspect]
     Dosage: 480 UG, 4X/DAY
     Route: 058
     Dates: start: 20130923, end: 20130926
  4. GANCICLOVIR [Suspect]
     Dosage: 205 MG, 4X/DAY
     Route: 042
     Dates: start: 20130925
  5. NORADRENALINE [Suspect]
     Dosage: 15 UG, QH
     Route: 041
     Dates: start: 20130923
  6. TEICOPLANIN [Suspect]
     Dosage: 800 MG, 2 TIMES
     Route: 042
     Dates: start: 20130925

REACTIONS (3)
  - Renal failure acute [Fatal]
  - Blood creatine increased [Fatal]
  - Blood urea increased [Fatal]
